FAERS Safety Report 10879041 (Version 1)
Quarter: 2015Q1

REPORT INFORMATION
  Report Type: Spontaneous
  Country: GB (occurrence: GB)
  Receive Date: 20150302
  Receipt Date: 20150302
  Transmission Date: 20150721
  Serious: Yes (Other)
  Sender: FDA-Public Use
  Company Number: GB-WATSON-2015-03470

PATIENT
  Age: 55 Year
  Sex: Female

DRUGS (1)
  1. TAMOXIFEN (UNKNOWN) [Suspect]
     Active Substance: TAMOXIFEN
     Indication: BREAST CANCER
     Dosage: 20 MG, UNK
     Route: 048
     Dates: start: 201202

REACTIONS (1)
  - Miliaria [Not Recovered/Not Resolved]

NARRATIVE: CASE EVENT DATE: 201408
